FAERS Safety Report 8905287 (Version 1)
Quarter: 2012Q4

REPORT INFORMATION
  Report Type: 
  Country: DE (occurrence: DE)
  Receive Date: 20121113
  Receipt Date: 20121113
  Transmission Date: 20130627
  Serious: Yes (Other)
  Sender: FDA-Public Use
  Company Number: DE-AMGEN-DEUSP2012061254

PATIENT
  Age: 55 Year
  Sex: Male
  Weight: 70 kg

DRUGS (4)
  1. NEULASTA [Suspect]
     Indication: CHEMOTHERAPY
     Dosage: 6 mg, one time dose
     Route: 058
     Dates: start: 20120707, end: 20120707
  2. TOPOTECAN [Concomitant]
     Indication: LUNG NEOPLASM MALIGNANT
     Dosage: 2.75 mg, per chemo regim
     Route: 042
     Dates: start: 20120612, end: 20120811
  3. ONDANSETRON [Concomitant]
     Indication: PROPHYLAXIS OF NAUSEA AND VOMITING
     Dosage: 8 mg, per chemo regim
     Route: 042
     Dates: start: 20120612, end: 20120811
  4. DEXAMETHASON                       /00016001/ [Concomitant]
     Indication: IMMUNOSUPPRESSION
     Dosage: 8 mg, per chemo regim
     Route: 042
     Dates: start: 20120612, end: 20120811

REACTIONS (2)
  - Neutrophil count decreased [Recovered/Resolved]
  - Drug ineffective [Recovered/Resolved]
